FAERS Safety Report 17016372 (Version 1)
Quarter: 2019Q4

REPORT INFORMATION
  Report Type: Spontaneous
  Country: US (occurrence: US)
  Receive Date: 20191111
  Receipt Date: 20191111
  Transmission Date: 20200122
  Serious: Yes (Life-Threatening, Hospitalization, Other)
  Sender: FDA-Public Use
  Company Number: US-JNJFOC-20191101279

PATIENT
  Age: 35 Year
  Sex: Male

DRUGS (1)
  1. DURAGESIC [Suspect]
     Active Substance: FENTANYL
     Indication: PRODUCT USED FOR UNKNOWN INDICATION

REACTIONS (5)
  - Off label use [Unknown]
  - Incorrect route of product administration [Unknown]
  - Drug dependence [Unknown]
  - Overdose [Unknown]
  - Pulmonary alveolar haemorrhage [Unknown]
